FAERS Safety Report 12254642 (Version 1)
Quarter: 2016Q2

REPORT INFORMATION
  Report Type: Spontaneous
  Country: US (occurrence: US)
  Receive Date: 20160411
  Receipt Date: 20160411
  Transmission Date: 20160815
  Serious: No
  Sender: FDA-Public Use
  Company Number: US-SA-2015SA065572

PATIENT
  Sex: Female

DRUGS (1)
  1. ALLEGRA D-12 HOUR [Suspect]
     Active Substance: FEXOFENADINE HYDROCHLORIDE\PSEUDOEPHEDRINE HYDROCHLORIDE
     Indication: OTITIS MEDIA
     Dosage: TAKEN FROM: 6 DAYS
     Route: 048

REACTIONS (3)
  - Dysphonia [Unknown]
  - Dry mouth [Unknown]
  - Drug administration error [Unknown]
